FAERS Safety Report 7416921-1 (Version None)
Quarter: 2011Q2

REPORT INFORMATION
  Report Type: 
  Country: None (occurrence: None)
  Receive Date: 20110415
  Receipt Date: 20110407
  Transmission Date: 20111010
  Serious: Yes (Other)
  Sender: FDA-Public Use
  Company Number: US-JNJFOC-20110402514

PATIENT
  Sex: Female
  Weight: 64.41 kg

DRUGS (6)
  1. TOPAMAX [Suspect]
     Indication: MIGRAINE
     Route: 048
  2. TOPAMAX [Suspect]
     Route: 048
  3. NORTRIPTYLINE [Suspect]
     Indication: DEPRESSION
     Route: 048
  4. DARVOCET [Concomitant]
     Indication: PAIN
     Route: 048
  5. UNSPECIFIED GENERIC TOPIRAMATE [Suspect]
     Indication: MIGRAINE
     Route: 048
  6. ELETRIPTAN [Concomitant]
     Indication: MIGRAINE
     Route: 048

REACTIONS (7)
  - MIGRAINE [None]
  - ANGER [None]
  - WEIGHT DECREASED [None]
  - ANKLE FRACTURE [None]
  - ALOPECIA [None]
  - WEIGHT INCREASED [None]
  - DRUG INEFFECTIVE [None]
